FAERS Safety Report 22184845 (Version 1)
Quarter: 2023Q2

REPORT INFORMATION
  Report Type: Spontaneous
  Country: US (occurrence: US)
  Receive Date: 20230407
  Receipt Date: 20230407
  Transmission Date: 20230722
  Serious: Yes (Other)
  Sender: FDA-Public Use
  Company Number: US-JNJFOC-20211044466

PATIENT
  Sex: Male

DRUGS (3)
  1. XARELTO [Suspect]
     Active Substance: RIVAROXABAN
     Indication: Thrombosis
     Route: 048
  2. PLETAL [Suspect]
     Active Substance: CILOSTAZOL
     Route: 065
  3. COVID-19 VACCINE [Concomitant]

REACTIONS (3)
  - Arterial bypass operation [Unknown]
  - Neuralgia [Not Recovered/Not Resolved]
  - Peripheral swelling [Unknown]
